FAERS Safety Report 5802826-6 (Version None)
Quarter: 2008Q2

REPORT INFORMATION
  Report Type: 
  Country: None (occurrence: None)
  Receive Date: 20080627
  Receipt Date: 20080415
  Transmission Date: 20081010
  Serious: Yes (Other)
  Sender: FDA-Public Use
  Company Number: PHEH2008US02965

PATIENT
  Age: 72 Year
  Sex: Female
  Weight: 103 kg

DRUGS (15)
  1. RECLAST [Suspect]
     Dosage: 5 MG, ONCE A YEAR, INTRAVENOUS
     Route: 042
     Dates: start: 20071210, end: 20071210
  2. PREDNSIONE (PREDNISONE) [Concomitant]
  3. THYROID TAB [Concomitant]
  4. COUMADIN [Concomitant]
  5. DIGOXIN [Concomitant]
  6. AMILORIDE HCL [Concomitant]
  7. MAGNESIUM OXIDE (MAGNESIUM OXIDE) [Concomitant]
  8. LASIX [Concomitant]
  9. ZAROXOLYN [Concomitant]
  10. HYDROCHLOROTHIAZIDE [Concomitant]
  11. POTASSIUM CHLORIDE [Concomitant]
  12. NORCO [Concomitant]
  13. METOPROLOL TARTRATE [Concomitant]
  14. PREVACID [Concomitant]
  15. CELEBREX [Concomitant]

REACTIONS (4)
  - ARTHRALGIA [None]
  - ATRIAL FIBRILLATION [None]
  - MUSCULOSKELETAL DISCOMFORT [None]
  - MYALGIA [None]
